FAERS Safety Report 13192121 (Version 1)
Quarter: 2017Q1

REPORT INFORMATION
  Report Type: Spontaneous
  Country: US (occurrence: US)
  Receive Date: 20170207
  Receipt Date: 20170207
  Transmission Date: 20170428
  Serious: No
  Sender: FDA-Public Use
  Company Number: US-PFIZER INC-2017049909

PATIENT
  Sex: Female

DRUGS (3)
  1. SUTENT [Suspect]
     Active Substance: SUNITINIB MALATE
     Dosage: 50 MG, UNK
  2. SUTENT [Suspect]
     Active Substance: SUNITINIB MALATE
     Dosage: 25 MG, UNK
  3. SUTENT [Suspect]
     Active Substance: SUNITINIB MALATE
     Dosage: 37.5 MG, CYCLIC (WEEKS ON, THEN 2 WEEKS OFF, 2 WEEKS ON AND ONE WEEK OFF, AND THEN ONE WEEK ON AND)

REACTIONS (12)
  - Neuralgia [Unknown]
  - Hair colour changes [Unknown]
  - Weight increased [Unknown]
  - Alopecia [Unknown]
  - Hypertension [Recovered/Resolved]
  - Blister [Recovering/Resolving]
  - Diarrhoea [Unknown]
  - Gait disturbance [Unknown]
  - Fatigue [Unknown]
  - Dysgeusia [Unknown]
  - Oral mucosal blistering [Recovering/Resolving]
  - Blister [Unknown]
